FAERS Safety Report 10441847 (Version 1)
Quarter: 2014Q3

REPORT INFORMATION
  Report Type: Spontaneous
  Country: US (occurrence: None)
  Receive Date: 20140722
  Receipt Date: 20140722
  Transmission Date: 20150326
  Serious: Yes (Other)
  Sender: FDA-Public Use
  Company Number: AEGR000043

PATIENT
  Age: 41 Year
  Sex: Male
  Weight: 112.5 kg

DRUGS (9)
  1. JUXTAPID [Suspect]
     Active Substance: LOMITAPIDE MESYLATE
     Indication: TYPE IIA HYPERLIPIDAEMIA
     Route: 048
     Dates: start: 20130401, end: 20130408
  2. PLAVIX (CLOPIDOGREL BISULFATE) TABLET [Concomitant]
  3. CRESTOR [Concomitant]
     Active Substance: ROSUVASTATIN CALCIUM
  4. AMLODIPINE (AMLODIPINE MALEATE) TABLET [Concomitant]
  5. METOPROLOL TARTRATE (METOPROLOL TARTRATE) TABLET [Concomitant]
  6. ZETIA [Concomitant]
     Active Substance: EZETIMIBE
  7. SERTRALINE (SERTRALINE HYDROCHLORIDE) TABLET [Concomitant]
  8. ASPIRIN (ACETYLSALICYLIC ACID) [Concomitant]
     Active Substance: ASPIRIN
  9. LOVAZA (OMEGA-3-ACID ETHYL ESTER) CAPSULE [Concomitant]

REACTIONS (1)
  - Angina pectoris [None]

NARRATIVE: CASE EVENT DATE: 20130401
